FAERS Safety Report 9883568 (Version 2)
Quarter: 2014Q1

REPORT INFORMATION
  Report Type: Report from Study
  Country: US (occurrence: US)
  Receive Date: 20140210
  Receipt Date: 20140214
  Transmission Date: 20141002
  Serious: Yes (Hospitalization)
  Sender: FDA-Public Use
  Company Number: US-ROCHE-1341161

PATIENT
  Age: 53 Year
  Sex: Female
  Weight: 43.4 kg

DRUGS (11)
  1. BEVACIZUMAB [Suspect]
     Indication: CHOLANGIOCARCINOMA
     Dosage: LAST DOSE OF BEVACIZUMAB PRIOR TO SAE ON 17/DEC/2013
     Route: 042
     Dates: start: 20110410
  2. CAPECITABINE [Suspect]
     Indication: CHOLANGIOCARCINOMA
     Dosage: LAST DOSE OF CAPECITABINE PRIOR TO SAE ON 31/DEC/2013
     Route: 048
     Dates: start: 20110410
  3. GEMCITABINE [Suspect]
     Indication: CHOLANGIOCARCINOMA
     Dosage: LAST DOSE OF GEMCITABINE PRIOR TO SAE ON 23/DEC/2013
     Route: 042
     Dates: start: 20110410
  4. ZOLPIDEM [Concomitant]
     Route: 048
     Dates: start: 20121029
  5. OXYCODONE [Concomitant]
     Route: 048
     Dates: start: 20130904
  6. OXYCODONE [Concomitant]
     Route: 048
     Dates: start: 20130904
  7. LORAZEPAM [Concomitant]
     Route: 048
     Dates: start: 20130806
  8. DOCUSATE [Concomitant]
     Route: 048
  9. LISINOPRIL [Concomitant]
     Dosage: DAILY
     Route: 048
  10. HYDROCHLOROTHIAZIDE [Concomitant]
     Route: 048
  11. PROCHLORPERAZINE [Concomitant]
     Route: 048
     Dates: start: 20121210

REACTIONS (2)
  - Urethral stenosis [Unknown]
  - Large intestine perforation [Unknown]
